FAERS Safety Report 13781247 (Version 1)
Quarter: 2017Q3

REPORT INFORMATION
  Report Type: Spontaneous
  Country: US (occurrence: US)
  Receive Date: 20170723
  Receipt Date: 20170723
  Transmission Date: 20171127
  Serious: Yes (Death)
  Sender: FDA-Public Use
  Company Number: None

PATIENT
  Age: 63 Year
  Sex: Male
  Weight: 72 kg

DRUGS (7)
  1. CILOSTAZOL LOSARTAN VENLAFAXINE [Concomitant]
  2. ZEPATIER [Suspect]
     Active Substance: ELBASVIR\GRAZOPREVIR
     Indication: HEPATITIS C
     Dosage: ?          QUANTITY:1 CAPSULE(S); ORAL?
     Route: 048
     Dates: start: 20170226, end: 20170314
  3. XANAX OXYCODONE [Concomitant]
  4. GABAPENTIN. [Concomitant]
     Active Substance: GABAPENTIN
  5. FLUOXETINR [Concomitant]
  6. OMEGA 3 FISH OIL [Concomitant]
     Active Substance: FISH OIL\OMEGA-3 FATTY ACIDS
  7. METOPROLOL. [Concomitant]
     Active Substance: METOPROLOL

REACTIONS (5)
  - Hypersensitivity [None]
  - Respiratory distress [None]
  - Delusion [None]
  - Renal disorder [None]
  - Hepatic failure [None]

NARRATIVE: CASE EVENT DATE: 20170316
